FAERS Safety Report 21514658 (Version 2)
Quarter: 2022Q4

REPORT INFORMATION
  Report Type: Spontaneous
  Country: ID (occurrence: ID)
  Receive Date: 20221027
  Receipt Date: 20221108
  Transmission Date: 20230113
  Serious: Yes (Hospitalization)
  Sender: FDA-Public Use
  Company Number: ID-TEVA-2022-ID-2819385

PATIENT
  Age: 51 Year
  Sex: Male

DRUGS (3)
  1. CLOPIDOGREL [Suspect]
     Active Substance: CLOPIDOGREL BISULFATE
     Indication: Acute coronary syndrome
     Dosage: LOADING DOSE , 300 MG
     Route: 065
  2. ASPIRIN [Suspect]
     Active Substance: ASPIRIN
     Indication: Acute coronary syndrome
     Dosage: LOADING DOSE , 300 MG , ADDITIONAL INFO: ACTION TAKEN: THERAPY CONTINUED
     Route: 065
  3. ENOXAPARIN [Suspect]
     Active Substance: ENOXAPARIN
     Indication: Acute coronary syndrome
     Dosage: 120 MILLIGRAM DAILY;
     Route: 065

REACTIONS (2)
  - Compartment syndrome [Recovering/Resolving]
  - Incorrect dosage administered [Recovering/Resolving]
